FAERS Safety Report 12214303 (Version 9)
Quarter: 2019Q3

REPORT INFORMATION
  Report Type: Spontaneous
  Country: US (occurrence: US)
  Receive Date: 20160328
  Receipt Date: 20190919
  Transmission Date: 20191004
  Serious: Yes (Hospitalization, Other)
  Sender: FDA-Public Use
  Company Number: US-PFIZER INC-2016177202

PATIENT
  Age: 86 Year
  Sex: Female
  Weight: 64.4 kg

DRUGS (4)
  1. XALATAN [Suspect]
     Active Substance: LATANOPROST
     Indication: EYE DISORDER
     Dosage: 2 GTT, 1X/DAY (1 DROP IN EACH EYE EVERY EVENING)
     Route: 047
  2. TIMOLOL MALEATE. [Concomitant]
     Active Substance: TIMOLOL MALEATE
     Indication: EYE DISORDER
     Dosage: 2 GTT, 2X/DAY (ONE DROP IN EACH EYE TWICE A DAY)
     Dates: start: 2019
  3. DORZOLAMIDE [Concomitant]
     Active Substance: DORZOLAMIDE
     Indication: EYE DISORDER
     Dosage: 2 GTT, 2X/DAY (PUT ONE DROP IN EACH EYE TWICE A DAY)
     Dates: start: 2019
  4. CARVEDILOL. [Concomitant]
     Active Substance: CARVEDILOL
     Indication: BLOOD PRESSURE ABNORMAL
     Dosage: 1 DF, 1X/DAY (AFTER BREAKFAST)

REACTIONS (14)
  - Malaise [Unknown]
  - Blindness [Recovered/Resolved]
  - Fatigue [Unknown]
  - Glaucoma [Recovered/Resolved]
  - Asthenia [Unknown]
  - Volvulus [Unknown]
  - Neck pain [Unknown]
  - Gait disturbance [Unknown]
  - Eye pain [Unknown]
  - Speech disorder [Unknown]
  - Insomnia [Unknown]
  - Cataract [Recovered/Resolved]
  - Weight decreased [Unknown]
  - Decreased appetite [Unknown]
